FAERS Safety Report 22347258 (Version 1)
Quarter: 2023Q2

REPORT INFORMATION
  Report Type: Spontaneous
  Country: US (occurrence: US)
  Receive Date: 20230521
  Receipt Date: 20230521
  Transmission Date: 20230722
  Serious: No
  Sender: FDA-Public Use
  Company Number: US-BRISTOL-MYERS SQUIBB COMPANY-2023-070960

PATIENT
  Age: 73 Year
  Sex: Male
  Weight: 102.51 kg

DRUGS (2)
  1. REVLIMID [Suspect]
     Active Substance: LENALIDOMIDE
     Indication: Plasma cell myeloma
     Dosage: DOSE : 25 MG;     FREQ : DAILY X 21 DAYS, THEN OFF 7 DAYS
     Route: 048
     Dates: start: 202111
  2. VELCADE [Concomitant]
     Active Substance: BORTEZOMIB
     Indication: Product used for unknown indication

REACTIONS (1)
  - Rash [Unknown]

NARRATIVE: CASE EVENT DATE: 20211101
